FAERS Safety Report 18399323 (Version 3)
Quarter: 2020Q4

REPORT INFORMATION
  Report Type: Spontaneous
  Country: BE (occurrence: BE)
  Receive Date: 20201019
  Receipt Date: 20201221
  Transmission Date: 20210114
  Serious: Yes (Hospitalization, Other)
  Sender: FDA-Public Use
  Company Number: BE-SA-2020SA284972

PATIENT

DRUGS (1)
  1. MYOZYME [Suspect]
     Active Substance: ALGLUCOSIDASE ALFA
     Indication: GLYCOGEN STORAGE DISEASE TYPE II
     Dosage: 1650 MG, QOW
     Route: 041

REACTIONS (26)
  - Abdominal discomfort [Recovering/Resolving]
  - Blood potassium increased [Unknown]
  - Myalgia [Recovering/Resolving]
  - Leukopenia [Unknown]
  - Blood glucose increased [Unknown]
  - Blood creatinine decreased [Unknown]
  - Blood pressure diastolic increased [Unknown]
  - Arterial bruit [Unknown]
  - Headache [Recovering/Resolving]
  - Cardiac disorder [Unknown]
  - Carbon dioxide increased [Unknown]
  - Influenza [Recovering/Resolving]
  - Feeling cold [Recovering/Resolving]
  - Monocytopenia [Unknown]
  - Heart rate increased [Unknown]
  - COVID-19 pneumonia [Recovering/Resolving]
  - Eructation [Recovering/Resolving]
  - Thrombocytopenia [Unknown]
  - Lymphopenia [Unknown]
  - C-reactive protein increased [Unknown]
  - Blood pressure systolic increased [Unknown]
  - COVID-19 [Recovering/Resolving]
  - SARS-CoV-2 test positive [Recovering/Resolving]
  - Rhinorrhoea [Recovering/Resolving]
  - Feeling hot [Recovering/Resolving]
  - Lipase decreased [Unknown]

NARRATIVE: CASE EVENT DATE: 20201009
